FAERS Safety Report 7869878-3 (Version None)
Quarter: 2011Q4

REPORT INFORMATION
  Report Type: 
  Country: None (occurrence: None)
  Receive Date: 20111028
  Receipt Date: 20110110
  Transmission Date: 20120403
  Serious: No
  Sender: FDA-Public Use
  Company Number: US-AMGEN-USASP2011001607

PATIENT
  Age: 50 Year
  Sex: Female
  Weight: 78.005 kg

DRUGS (1)
  1. ENBREL [Suspect]
     Indication: PRODUCT USED FOR UNKNOWN INDICATION
     Dosage: 25 MG/ML, 2 TIMES/WK
     Route: 058

REACTIONS (1)
  - THERMAL BURN [None]
